FAERS Safety Report 15892228 (Version 1)
Quarter: 2019Q1

REPORT INFORMATION
  Report Type: Report from Study
  Country: US (occurrence: US)
  Receive Date: 20190130
  Receipt Date: 20190130
  Transmission Date: 20190417
  Serious: No
  Sender: FDA-Public Use
  Company Number: US-EXELIXIS-CABO-18015050

PATIENT
  Sex: Male

DRUGS (21)
  1. BROMFED DM [Concomitant]
     Active Substance: BROMPHENIRAMINE MALEATE\DEXTROMETHORPHAN HYDROBROMIDE\PSEUDOEPHEDRINE HYDROCHLORIDE
  2. TAMSULOSIN [Concomitant]
     Active Substance: TAMSULOSIN
  3. CLOTRIMAZOLE AND BETAMETHASONE [Concomitant]
     Active Substance: BETAMETHASONE\CLOTRIMAZOLE
  4. ACETAMINOPHEN AND CODEINE [Concomitant]
     Active Substance: ACETAMINOPHEN\CODEINE PHOSPHATE
  5. NYSTATIN. [Concomitant]
     Active Substance: NYSTATIN
  6. LOSARTAN. [Concomitant]
     Active Substance: LOSARTAN
  7. ESOMEPRAZOLE. [Concomitant]
     Active Substance: ESOMEPRAZOLE MAGNESIUM
  8. ONDANSETRON [Concomitant]
     Active Substance: ONDANSETRON
  9. FUROSEMIDE. [Concomitant]
     Active Substance: FUROSEMIDE
  10. CHLORHEXIDINE [Concomitant]
     Active Substance: CHLORHEXIDINE
  11. ZOFRAN [Concomitant]
     Active Substance: ONDANSETRON HYDROCHLORIDE
  12. URSODIOL. [Concomitant]
     Active Substance: URSODIOL
  13. KRILL OIL [Concomitant]
     Active Substance: DIETARY SUPPLEMENT
  14. LIDOCAINE. [Concomitant]
     Active Substance: LIDOCAINE
  15. ASPIRIN. [Concomitant]
     Active Substance: ASPIRIN
  16. CABOMETYX [Suspect]
     Active Substance: CABOZANTINIB S-MALATE
     Indication: RENAL CANCER
     Dosage: 40 MG, QD
     Route: 048
     Dates: start: 20180531, end: 201807
  17. INLYTA [Concomitant]
     Active Substance: AXITINIB
  18. CYANOCOBALAMIN. [Concomitant]
     Active Substance: CYANOCOBALAMIN
  19. PENICILLIN V [Concomitant]
     Active Substance: PENICILLIN V
  20. AMLODIPINE [Concomitant]
     Active Substance: AMLODIPINE BESYLATE
  21. VOTRIENT [Concomitant]
     Active Substance: PAZOPANIB HYDROCHLORIDE

REACTIONS (1)
  - Adverse drug reaction [Unknown]

NARRATIVE: CASE EVENT DATE: 2018
